FAERS Safety Report 9163763 (Version 1)
Quarter: 2012Q4

REPORT INFORMATION
  Report Type: 
  Country: US (occurrence: US)
  Receive Date: 20121205
  Receipt Date: 20121205
  Transmission Date: 20130627
  Serious: Yes (Other)
  Sender: FDA-Public Use
  Company Number: US-RB-030378-11

PATIENT
  Age: 0 None
  Sex: Male

DRUGS (7)
  1. SUBUTEX [Suspect]
     Indication: PRODUCT USED FOR UNKNOWN INDICATION
     Dosage: Dosing details unknown
     Route: 064
  2. SUBUTEX [Suspect]
     Dosage: Dosing details unknown- Unknown if mother ever stopped Subutex
     Route: 063
  3. SUBOXONE TABLET [Suspect]
     Indication: PRODUCT USED FOR UNKNOWN INDICATION
     Dosage: Dosing information unknown
     Route: 064
  4. KLONOPIN [Suspect]
     Indication: PRODUCT USED FOR UNKNOWN INDICATION
     Route: 064
  5. KLONOPIN [Suspect]
     Dosage: Dosing details are unknown/ Unknown if mother ever stopped medication
     Route: 063
  6. OXYCONTIN [Suspect]
     Indication: PRODUCT USED FOR UNKNOWN INDICATION
     Route: 063
     Dates: start: 2011
  7. LORTAB [Suspect]
     Indication: PRODUCT USED FOR UNKNOWN INDICATION
     Route: 063
     Dates: start: 2011

REACTIONS (3)
  - Foetal exposure during pregnancy [Recovered/Resolved]
  - Jaundice neonatal [Recovered/Resolved]
  - Exposure during breast feeding [Recovered/Resolved]
